FAERS Safety Report 12199130 (Version 2)
Quarter: 2016Q2

REPORT INFORMATION
  Report Type: Spontaneous
  Country: US (occurrence: US)
  Receive Date: 20160322
  Receipt Date: 20160401
  Transmission Date: 20160815
  Serious: Yes (Death)
  Sender: FDA-Public Use
  Company Number: US-009507513-1603USA008826

PATIENT
  Age: 58 Year
  Sex: Male

DRUGS (1)
  1. PEGINTRON [Suspect]
     Active Substance: PEGINTERFERON ALFA-2B
     Indication: NEOPLASM MALIGNANT
     Dosage: 80 MICROGRAM, QW
     Route: 058
     Dates: start: 20121116

REACTIONS (2)
  - Infection [Fatal]
  - Product use issue [Unknown]

NARRATIVE: CASE EVENT DATE: 20151211
